FAERS Safety Report 10244392 (Version 1)
Quarter: 2014Q2

REPORT INFORMATION
  Report Type: Spontaneous
  Country: IT (occurrence: None)
  Receive Date: 20140616
  Receipt Date: 20140616
  Transmission Date: 20141212
  Serious: Yes (Other)
  Sender: FDA-Public Use
  Company Number: 2014AP003298

PATIENT
  Age: 63 Year
  Sex: Female

DRUGS (3)
  1. CLARITHROMYCIN [Suspect]
     Indication: EAR INFECTION
     Route: 048
     Dates: start: 20140407, end: 20140409
  2. ALIFLUS [Suspect]
     Indication: ASTHMA
     Dates: start: 20140101, end: 20140409
  3. COTAREG (HYDROCHLOROTHIAZIDE, VALSARTAN) [Concomitant]

REACTIONS (4)
  - Blood pressure fluctuation [None]
  - Drug interaction [None]
  - Chest pain [None]
  - Palpitations [None]
